FAERS Safety Report 11172765 (Version 1)
Quarter: 2015Q2

REPORT INFORMATION
  Report Type: Spontaneous
  Country: AU (occurrence: AU)
  Receive Date: 20150608
  Receipt Date: 20150608
  Transmission Date: 20150821
  Serious: Yes (Other)
  Sender: FDA-Public Use
  Company Number: AU-ASTELLAS-2015US019491

PATIENT
  Age: 6 Decade
  Sex: Male

DRUGS (1)
  1. XTANDI [Suspect]
     Active Substance: ENZALUTAMIDE
     Indication: PRODUCT USED FOR UNKNOWN INDICATION
     Dosage: TOOK TOTAL OF 8 DOSES, UNKNOWN FREQ.
     Route: 065

REACTIONS (2)
  - Platelet count decreased [Unknown]
  - Subdural haemorrhage [Unknown]
